FAERS Safety Report 4673149-6 (Version None)
Quarter: 2005Q2

REPORT INFORMATION
  Report Type: 
  Country: None (occurrence: None)
  Receive Date: 20050525
  Receipt Date: 20050518
  Transmission Date: 20051028
  Serious: Yes (Other)
  Sender: FDA-Public Use
  Company Number: 200514523GDDC

PATIENT
  Age: 50 Year
  Sex: Female

DRUGS (3)
  1. TAXOTERE [Suspect]
     Indication: BREAST CANCER
     Dosage: DOSE: UNK (CYCLICAL)
     Route: 051
     Dates: start: 20031215, end: 20040515
  2. ZOMETA [Suspect]
     Indication: OSTEOMYELITIS CHRONIC
     Route: 051
     Dates: start: 20031015, end: 20050215
  3. ARIMIDEX [Suspect]
     Dosage: DOSE: UNK
     Route: 048
     Dates: start: 20021015

REACTIONS (1)
  - OSTEONECROSIS [None]
